FAERS Safety Report 13664221 (Version 6)
Quarter: 2022Q1

REPORT INFORMATION
  Report Type: Spontaneous
  Country: GB (occurrence: GB)
  Receive Date: 20170619
  Receipt Date: 20220323
  Transmission Date: 20220423
  Serious: Yes (Other)
  Sender: FDA-Public Use
  Company Number: None

PATIENT
  Age: 47 Year
  Sex: Female

DRUGS (5)
  1. LINEZOLID [Suspect]
     Active Substance: LINEZOLID
     Dosage: UNK
     Route: 041
  2. LINEZOLID [Suspect]
     Active Substance: LINEZOLID
     Dosage: UNK
  3. METFORMIN HYDROCHLORIDE [Suspect]
     Active Substance: METFORMIN HYDROCHLORIDE
     Dosage: UNK
     Route: 048
  4. DAPTOMYCIN [Suspect]
     Active Substance: DAPTOMYCIN
     Dosage: HIGH DOSE
     Route: 041
  5. DAPTOMYCIN [Suspect]
     Active Substance: DAPTOMYCIN
     Dosage: UNK

REACTIONS (2)
  - Lactic acidosis [Recovered/Resolved]
  - Blood creatine phosphokinase increased [Recovering/Resolving]
